FAERS Safety Report 7252570-6 (Version None)
Quarter: 2011Q1

REPORT INFORMATION
  Report Type: 
  Country: None (occurrence: None)
  Receive Date: 20110129
  Receipt Date: 20100408
  Transmission Date: 20110831
  Serious: Yes (Hospitalization)
  Sender: FDA-Public Use
  Company Number: US-ABBOTT-10P-163-0637446-00

PATIENT
  Sex: Male

DRUGS (2)
  1. HUMIRA [Suspect]
     Indication: COLITIS ULCERATIVE
     Dates: start: 20081201, end: 20090401
  2. HUMIRA [Suspect]
     Dates: start: 20090401

REACTIONS (2)
  - INFLUENZA LIKE ILLNESS [None]
  - DRUG INEFFECTIVE [None]
